FAERS Safety Report 4534705-9 (Version None)
Quarter: 2004Q4

REPORT INFORMATION
  Report Type: 
  Country: None (occurrence: None)
  Receive Date: 20041222
  Receipt Date: 20031117
  Transmission Date: 20050328
  Serious: No
  Sender: FDA-Public Use
  Company Number: US-BRISTOL-MYERS SQUIBB COMPANY-12438537

PATIENT
  Age: 75 Year
  Sex: Male
  Weight: 107 kg

DRUGS (1)
  1. PRAVACHOL [Suspect]
     Indication: BLOOD CHOLESTEROL
     Route: 048
     Dates: end: 20031101

REACTIONS (2)
  - MUSCLE CRAMP [None]
  - MYALGIA [None]
